FAERS Safety Report 25356844 (Version 1)
Quarter: 2025Q2

REPORT INFORMATION
  Report Type: Spontaneous
  Country: US (occurrence: US)
  Receive Date: 20250526
  Receipt Date: 20250526
  Transmission Date: 20250717
  Serious: Yes (Hospitalization)
  Sender: NOVO NORDISK
  Company Number: US-NOVOPROD-1433527

PATIENT
  Age: 55 Year
  Sex: Female

DRUGS (1)
  1. LEVEMIR [Suspect]
     Active Substance: INSULIN DETEMIR
     Indication: Type 2 diabetes mellitus
     Route: 058
     Dates: start: 2017

REACTIONS (3)
  - Cardiac disorder [Unknown]
  - Loss of consciousness [Unknown]
  - Intra-aortic balloon placement [Unknown]

NARRATIVE: CASE EVENT DATE: 20250301
